FAERS Safety Report 9265039 (Version 1)
Quarter: 2013Q2

REPORT INFORMATION
  Report Type: Spontaneous
  Country: US (occurrence: None)
  Receive Date: 20130430
  Receipt Date: 20130430
  Transmission Date: 20140414
  Serious: No
  Sender: FDA-Public Use
  Company Number: None

PATIENT
  Sex: Male
  Weight: 102.51 kg

DRUGS (3)
  1. LANSOPRAZOLE [Suspect]
     Indication: BARRETT^S OESOPHAGUS
     Dosage: 1 TABLET FOR 14 DAYS
     Route: 048
  2. LANSOPRAZOLE [Suspect]
     Indication: HELICOBACTER INFECTION
     Dosage: 1 TABLET FOR 14 DAYS
     Route: 048
  3. DEXILANT [Suspect]
     Route: 048

REACTIONS (1)
  - Treatment failure [None]
